FAERS Safety Report 16477073 (Version 3)
Quarter: 2020Q3

REPORT INFORMATION
  Report Type: Other
  Country: PT (occurrence: PT)
  Receive Date: 20190626
  Receipt Date: 20200814
  Transmission Date: 20201102
  Serious: Yes (Other)
  Sender: FDA-Public Use
  Company Number: PT-ROCHE-2338940

PATIENT
  Age: 16 Year
  Sex: Male

DRUGS (5)
  1. VALPROIC ACID. [Concomitant]
     Active Substance: VALPROIC ACID
  2. SOMATROPIN. [Suspect]
     Active Substance: SOMATROPIN
     Route: 065
  3. METHYLPHENIDATE. [Concomitant]
     Active Substance: METHYLPHENIDATE
  4. TESTOSTERONE ENANTHATE. [Concomitant]
     Active Substance: TESTOSTERONE ENANTHATE
     Indication: PRADER-WILLI SYNDROME
     Route: 030
  5. SOMATROPIN. [Suspect]
     Active Substance: SOMATROPIN
     Indication: PRADER-WILLI SYNDROME
     Route: 065
     Dates: start: 2012, end: 201607

REACTIONS (10)
  - Insulin resistance [Unknown]
  - Obesity [Not Recovered/Not Resolved]
  - Hyperphagia [Unknown]
  - Cognitive disorder [Unknown]
  - Intentional product use issue [Unknown]
  - Stubbornness [Unknown]
  - Sleep apnoea syndrome [Not Recovered/Not Resolved]
  - Impulsive behaviour [Unknown]
  - Aggression [Unknown]
  - Off label use [Unknown]
